FAERS Safety Report 5217718-3 (Version None)
Quarter: 2007Q1

REPORT INFORMATION
  Report Type: 
  Country: None (occurrence: None)
  Receive Date: 20070119
  Receipt Date: 20070108
  Transmission Date: 20070707
  Serious: Yes (Disabling)
  Sender: FDA-Public Use
  Company Number: CHWYE058908JAN07

PATIENT
  Sex: 0

DRUGS (2)
  1. EFFEXOR [Suspect]
     Dosage: TRANSPLACENTAL
     Route: 064
     Dates: start: 20050127, end: 20050217
  2. TOPAMAX [Suspect]
     Dosage: TRANSPLACENTAL
     Route: 064
     Dates: start: 20050127, end: 20050217

REACTIONS (4)
  - DRUG EXPOSURE DURING PREGNANCY [None]
  - FOETAL GROWTH RETARDATION [None]
  - HYDROCEPHALUS [None]
  - PSYCHOMOTOR SKILLS IMPAIRED [None]
